FAERS Safety Report 17242788 (Version 1)
Quarter: 2020Q1

REPORT INFORMATION
  Report Type: Report from Study
  Country: CA (occurrence: CA)
  Receive Date: 20200107
  Receipt Date: 20200107
  Transmission Date: 20200409
  Serious: Yes (Other)
  Sender: FDA-Public Use
  Company Number: CA-PFIZER INC-2019563118

PATIENT
  Age: 48 Year
  Sex: Male

DRUGS (5)
  1. COSENTYX [Suspect]
     Active Substance: SECUKINUMAB
     Indication: PSORIASIS
     Dosage: 300 MG, MONTHLY
     Route: 058
  2. METHOTREXATE SODIUM. [Suspect]
     Active Substance: METHOTREXATE SODIUM
     Route: 065
  3. BETAMETHASONE DIPROPIONATE/CALCIPOTRIOL [Concomitant]
     Route: 065
  4. ACITRETIN. [Concomitant]
     Active Substance: ACITRETIN
     Route: 065
  5. CICLOSPORIN [Suspect]
     Active Substance: CYCLOSPORINE
     Route: 065

REACTIONS (8)
  - Inappropriate schedule of product administration [Not Recovered/Not Resolved]
  - Pain in extremity [Not Recovered/Not Resolved]
  - Discomfort [Not Recovered/Not Resolved]
  - Onychalgia [Not Recovered/Not Resolved]
  - Peripheral swelling [Not Recovered/Not Resolved]
  - Onychomadesis [Not Recovered/Not Resolved]
  - Swelling [Not Recovered/Not Resolved]
  - Cellulitis [Not Recovered/Not Resolved]
